FAERS Safety Report 16940564 (Version 1)
Quarter: 2019Q4

REPORT INFORMATION
  Report Type: Spontaneous
  Country: CN (occurrence: CN)
  Receive Date: 20191021
  Receipt Date: 20191021
  Transmission Date: 20200122
  Serious: Yes (Other)
  Sender: FDA-Public Use
  Company Number: CN-CHEPLA-C20192632

PATIENT
  Age: 65 Year
  Sex: Male

DRUGS (1)
  1. ORLISTAT. [Suspect]
     Active Substance: ORLISTAT
     Dosage: 360MG PER DAY FOR 10 MONTHS
     Route: 065

REACTIONS (6)
  - Haematuria [Unknown]
  - Oxalosis [Unknown]
  - Renal cyst [Unknown]
  - Acute kidney injury [Not Recovered/Not Resolved]
  - Nephrolithiasis [Unknown]
  - Tubulointerstitial nephritis [Unknown]
